FAERS Safety Report 20403105 (Version 4)
Quarter: 2022Q2

REPORT INFORMATION
  Report Type: Report from Study
  Country: US (occurrence: US)
  Receive Date: 20220131
  Receipt Date: 20220518
  Transmission Date: 20220721
  Serious: Yes (Other)
  Sender: FDA-Public Use
  Company Number: US-ABBVIE-22K-163-4249914-00

PATIENT
  Age: 67 Year
  Sex: Female

DRUGS (4)
  1. RINVOQ [Suspect]
     Active Substance: UPADACITINIB
     Indication: Rheumatoid arthritis
     Route: 048
  2. PFIZER-BIONTECH COVID-19 VACCINE [Concomitant]
     Active Substance: TOZINAMERAN
     Indication: COVID-19 immunisation
     Dosage: 1ST DOSE
     Route: 030
     Dates: start: 20210321, end: 20210321
  3. PFIZER-BIONTECH COVID-19 VACCINE [Concomitant]
     Active Substance: TOZINAMERAN
     Dosage: 2ND DOSE
     Route: 030
     Dates: start: 20210805, end: 20210805
  4. PFIZER-BIONTECH COVID-19 VACCINE [Concomitant]
     Active Substance: TOZINAMERAN
     Dosage: 3RD DOSE
     Route: 030
     Dates: start: 20210819, end: 20210819

REACTIONS (11)
  - Multiple sclerosis relapse [Recovering/Resolving]
  - Renal disorder [Recovering/Resolving]
  - Skin wrinkling [Unknown]
  - Pain [Recovering/Resolving]
  - Dysphonia [Unknown]
  - Disturbance in attention [Unknown]
  - Bladder disorder [Unknown]
  - Upper-airway cough syndrome [Unknown]
  - Inflammation [Not Recovered/Not Resolved]
  - Unevaluable event [Unknown]
  - Cough [Unknown]

NARRATIVE: CASE EVENT DATE: 20210923
